FAERS Safety Report 5421929-1 (Version None)
Quarter: 2007Q3

REPORT INFORMATION
  Report Type: 
  Country: None (occurrence: None)
  Receive Date: 20070822
  Receipt Date: 20070814
  Transmission Date: 20080115
  Serious: Yes (Other)
  Sender: FDA-Public Use
  Company Number: US-JNJFOC-20070803541

PATIENT
  Sex: Female
  Weight: 64.86 kg

DRUGS (2)
  1. FENTANYL TRANSDERMAL SYSTEM [Suspect]
     Indication: PAIN
     Route: 062
  2. COZAAR [Concomitant]
     Indication: HYPERTENSION
     Route: 048

REACTIONS (4)
  - DISORIENTATION [None]
  - FALL [None]
  - FEELING ABNORMAL [None]
  - SOMNOLENCE [None]
